FAERS Safety Report 4892183-4 (Version None)
Quarter: 2006Q1

REPORT INFORMATION
  Report Type: 
  Country: None (occurrence: None)
  Receive Date: 20060123
  Receipt Date: 20060112
  Transmission Date: 20060701
  Serious: Yes (Other)
  Sender: FDA-Public Use
  Company Number: 2006-01-0869

PATIENT
  Age: 42 Year
  Sex: Male

DRUGS (3)
  1. PEG-INTERFERON ALFA-2B INJECTABLE [Suspect]
     Indication: HEPATITIS C
  2. RIBAVIRIN [Suspect]
     Indication: HEPATITIS C
  3. INTERFERON [Suspect]
     Indication: HEPATITIS C

REACTIONS (1)
  - VOGT-KOYANAGI-HARADA SYNDROME [None]
